FAERS Safety Report 6871881-7 (Version None)
Quarter: 2010Q3

REPORT INFORMATION
  Report Type: 
  Country: None (occurrence: None)
  Receive Date: 20100723
  Receipt Date: 20100716
  Transmission Date: 20110219
  Serious: Yes (Other)
  Sender: FDA-Public Use
  Company Number: US-JNJFOC-20100510201

PATIENT
  Sex: Male
  Weight: 61.24 kg

DRUGS (1)
  1. LEVAQUIN [Suspect]
     Indication: BRONCHITIS
     Route: 048

REACTIONS (4)
  - CONSTIPATION [None]
  - DIARRHOEA [None]
  - RECTAL HAEMORRHAGE [None]
  - URINARY INCONTINENCE [None]
